FAERS Safety Report 6565290-8 (Version None)
Quarter: 2010Q1

REPORT INFORMATION
  Report Type: 
  Country: None (occurrence: None)
  Receive Date: 20100201
  Receipt Date: 20100122
  Transmission Date: 20100710
  Serious: Yes (Hospitalization)
  Sender: FDA-Public Use
  Company Number: HK-ROCHE-681375

PATIENT

DRUGS (2)
  1. MIRCERA [Suspect]
     Route: 065
     Dates: start: 20091101, end: 20091201
  2. MIRCERA [Suspect]
     Route: 065
     Dates: start: 20091201, end: 20100101

REACTIONS (3)
  - CARDIAC FAILURE CONGESTIVE [None]
  - DRUG INEFFECTIVE [None]
  - HAEMOGLOBIN DECREASED [None]
